FAERS Safety Report 5410604-5 (Version None)
Quarter: 2007Q3

REPORT INFORMATION
  Report Type: 
  Country: None (occurrence: None)
  Receive Date: 20070810
  Receipt Date: 20070405
  Transmission Date: 20080115
  Serious: No
  Sender: FDA-Public Use
  Company Number: A0646082A

PATIENT
  Age: 55 Year
  Sex: Male

DRUGS (2)
  1. PAROXETINE [Suspect]
     Indication: DEPRESSION
     Dosage: 10MG PER DAY
     Route: 048
     Dates: start: 20060101, end: 20070331
  2. ZOCOR [Concomitant]

REACTIONS (1)
  - SENSATION OF BLOOD FLOW [None]
